FAERS Safety Report 8393220-5 (Version None)
Quarter: 2012Q2

REPORT INFORMATION
  Report Type: 
  Country: None (occurrence: None)
  Receive Date: 20120529
  Receipt Date: 20120516
  Transmission Date: 20120825
  Serious: No
  Sender: FDA-Public Use
  Company Number: US-ABBOTT-12P-163-0937103-00

PATIENT
  Age: 53 Year
  Sex: Male
  Weight: 108.96 kg

DRUGS (2)
  1. UNKNOWN BLOOD PRESSSURE MEDICATION [Concomitant]
     Indication: HYPERTENSION
  2. ANDROGEL [Suspect]
     Indication: BLOOD TESTOSTERONE DECREASED
     Dosage: UNKNOWN DOSE
     Route: 061
     Dates: start: 20120301

REACTIONS (2)
  - POLLAKIURIA [None]
  - DRY MOUTH [None]
